FAERS Safety Report 8454199-0 (Version None)
Quarter: 2012Q2

REPORT INFORMATION
  Report Type: 
  Country: None (occurrence: None)
  Receive Date: 20120620
  Receipt Date: 20120613
  Transmission Date: 20120825
  Serious: Yes (Hospitalization)
  Sender: FDA-Public Use
  Company Number: DE-ROCHE-1078316

PATIENT
  Sex: Female
  Weight: 56 kg

DRUGS (3)
  1. PACLITAXEL [Suspect]
     Indication: BREAST CANCER
     Dosage: LAST DOSE PRIOR TO THE SAE ON 05/JUN/2012
     Route: 042
     Dates: start: 20120515
  2. NEULASTA [Concomitant]
     Dates: start: 20120530, end: 20120530
  3. XELODA [Suspect]
     Indication: BREAST CANCER
     Dosage: LAST DOSE PRIOR TO THE SAE ON 05/JUN/2012
     Route: 048
     Dates: start: 20120515

REACTIONS (1)
  - GENERAL PHYSICAL HEALTH DETERIORATION [None]
